FAERS Safety Report 21920698 (Version 1)
Quarter: 2023Q1

REPORT INFORMATION
  Report Type: Spontaneous
  Country: ES (occurrence: ES)
  Receive Date: 20230127
  Receipt Date: 20230127
  Transmission Date: 20230418
  Serious: Yes (Hospitalization)
  Sender: FDA-Public Use
  Company Number: ES-MALLINCKRODT-T202300508

PATIENT
  Age: 60 Year
  Sex: Female

DRUGS (3)
  1. UVADEX [Suspect]
     Active Substance: METHOXSALEN
     Indication: Chronic graft versus host disease
     Dosage: UNK, EXTRACORPOREAL
     Route: 050
  2. PREDNISONE [Concomitant]
     Active Substance: PREDNISONE
     Indication: Chronic graft versus host disease
     Dosage: 1 MILLIGRAM/KILOGRAM
     Route: 065
  3. URSODIOL [Concomitant]
     Active Substance: URSODIOL
     Indication: Chronic graft versus host disease
     Dosage: UNK
     Route: 065

REACTIONS (5)
  - Raynaud^s phenomenon [Recovering/Resolving]
  - Systemic scleroderma [Recovering/Resolving]
  - Peripheral arterial occlusive disease [Recovering/Resolving]
  - Condition aggravated [Recovering/Resolving]
  - Drug effective for unapproved indication [Unknown]
